FAERS Safety Report 22142627 (Version 10)
Quarter: 2023Q4

REPORT INFORMATION
  Report Type: Spontaneous
  Country: DE (occurrence: DE)
  Receive Date: 20230327
  Receipt Date: 20231010
  Transmission Date: 20240110
  Serious: Yes (Other)
  Sender: FDA-Public Use
  Company Number: DE-TAKEDA-2022TUS056101

PATIENT
  Age: 35 Year
  Sex: Female

DRUGS (16)
  1. HUMIRA [Suspect]
     Active Substance: ADALIMUMAB
     Indication: Product used for unknown indication
     Route: 058
  2. RINVOQ [Suspect]
     Active Substance: UPADACITINIB
     Indication: Product used for unknown indication
     Route: 048
     Dates: start: 202303
  3. CORTISONE [Suspect]
     Active Substance: CORTISONE
     Indication: Colitis ulcerative
     Route: 065
  4. OMEGA 3 [Concomitant]
     Active Substance: CAPSAICIN
     Indication: Product used for unknown indication
  5. ASACOL [Suspect]
     Active Substance: MESALAMINE
     Indication: Colitis ulcerative
     Route: 065
  6. VITAMIN B12 [Concomitant]
     Active Substance: CYANOCOBALAMIN
     Indication: Product used for unknown indication
  7. ENTYVIO [Suspect]
     Active Substance: VEDOLIZUMAB
     Indication: Colitis ulcerative
     Route: 065
  8. ENTYVIO [Suspect]
     Active Substance: VEDOLIZUMAB
     Indication: Colitis ulcerative
     Route: 058
  9. ENTYVIO [Suspect]
     Active Substance: VEDOLIZUMAB
     Indication: Colitis ulcerative
     Route: 065
     Dates: start: 202111
  10. VITAMIN D [Concomitant]
     Active Substance: VITAMIN D NOS
     Indication: Product used for unknown indication
  11. SELENIUM [Concomitant]
     Active Substance: SELENIUM
     Indication: Product used for unknown indication
     Route: 065
  12. CALCIUM [Concomitant]
     Active Substance: CALCIUM
     Indication: Product used for unknown indication
  13. CURCUMIN [Concomitant]
     Active Substance: CURCUMIN
     Indication: Product used for unknown indication
  14. MAGNESIUM [Concomitant]
     Active Substance: MAGNESIUM
     Indication: Product used for unknown indication
  15. BUDESONIDE [Suspect]
     Active Substance: BUDESONIDE
     Indication: Colitis ulcerative
     Route: 065
  16. ADALIMUMAB [Suspect]
     Active Substance: ADALIMUMAB
     Indication: Colitis ulcerative
     Dosage: UNKNOWN
     Route: 065

REACTIONS (14)
  - Faecal calprotectin increased [Unknown]
  - Acne [Unknown]
  - Muscle spasms [Unknown]
  - COVID-19 [Unknown]
  - Drug ineffective [Unknown]
  - Colitis ulcerative [Unknown]
  - Flatulence [Unknown]
  - Skin disorder [Unknown]
  - Blood test abnormal [Unknown]
  - Drug ineffective [Unknown]
  - Bronchitis [Unknown]
  - Rhinalgia [Unknown]
  - Muscle spasms [Unknown]
  - Therapeutic product effect decreased [Unknown]

NARRATIVE: CASE EVENT DATE: 20230801
